FAERS Safety Report 11560439 (Version 1)
Quarter: 2015Q3

REPORT INFORMATION
  Report Type: Spontaneous
  Country: US (occurrence: US)
  Receive Date: 20150928
  Receipt Date: 20150928
  Transmission Date: 20151125
  Serious: No
  Sender: FDA-Public Use
  Company Number: US-MYLANLABS-2015M1013289

PATIENT
  Sex: Female

DRUGS (1)
  1. FUROSEMIDE TABLETS USP [Suspect]
     Active Substance: FUROSEMIDE
     Dosage: UNK

REACTIONS (5)
  - Muscle fatigue [Recovered/Resolved]
  - Nasal disorder [Recovered/Resolved]
  - Constipation [Recovered/Resolved]
  - Peripheral swelling [Recovered/Resolved]
  - Pain in extremity [Recovered/Resolved]
